FAERS Safety Report 24627666 (Version 2)
Quarter: 2025Q3

REPORT INFORMATION
  Report Type: Spontaneous
  Country: CN (occurrence: CN)
  Receive Date: 20241116
  Receipt Date: 20250803
  Transmission Date: 20251020
  Serious: Yes (Hospitalization)
  Sender: ALEXION PHARMACEUTICALS
  Company Number: CN-ASTRAZENECA-202411CHN008299CN

PATIENT
  Age: 63 Year
  Sex: Male
  Weight: 70 kg

DRUGS (3)
  1. DAPAGLIFLOZIN [Suspect]
     Active Substance: DAPAGLIFLOZIN
     Indication: Therapeutic procedure
     Dosage: 10 MILLIGRAM, QD
     Dates: start: 20240501, end: 20240902
  2. DAPAGLIFLOZIN [Suspect]
     Active Substance: DAPAGLIFLOZIN
     Indication: Blood glucose increased
  3. SITAGLIPTIN [Concomitant]
     Active Substance: SITAGLIPTIN
     Indication: Blood glucose increased
     Dosage: 0.1 MILLIGRAM, QD
     Dates: start: 202405

REACTIONS (2)
  - Albumin urine present [Recovering/Resolving]
  - Urinary tract infection [Recovering/Resolving]

NARRATIVE: CASE EVENT DATE: 20240828
